FAERS Safety Report 11322737 (Version 4)
Quarter: 2015Q3

REPORT INFORMATION
  Report Type: Spontaneous
  Country: IT (occurrence: IT)
  Receive Date: 20150730
  Receipt Date: 20150909
  Transmission Date: 20151125
  Serious: Yes (Death, Hospitalization)
  Sender: FDA-Public Use
  Company Number: IT-009507513-1507ITA011935

PATIENT
  Age: 81 Year
  Sex: Female

DRUGS (9)
  1. INDERAL [Concomitant]
     Active Substance: PROPRANOLOL HYDROCHLORIDE
     Dosage: UNK
  2. EXVIERA [Suspect]
     Active Substance: DASABUVIR
     Indication: HEPATITIS C ANTIBODY POSITIVE
     Dosage: 500 MG, DAILY
     Route: 048
     Dates: start: 20150623, end: 20150715
  3. SPIRIVA [Concomitant]
     Active Substance: TIOTROPIUM BROMIDE MONOHYDRATE
     Dosage: UNK
  4. DIBASE [Concomitant]
     Active Substance: CHOLECALCIFEROL
     Dosage: UNK
  5. REBETOL [Suspect]
     Active Substance: RIBAVIRIN
     Indication: HEPATITIS C ANTIBODY POSITIVE
     Dosage: 1000 MG DAILY
     Route: 048
     Dates: start: 20150623, end: 20150715
  6. VIEKIRAX [Suspect]
     Active Substance: OMBITASVIR\PARITAPREVIR\RITONAVIR
     Indication: HEPATITIS C ANTIBODY POSITIVE
     Dosage: 25 MG + 150 MG + 100 MG DAILY
     Route: 048
     Dates: start: 20150623, end: 20150715
  7. FOSICOMB [Concomitant]
     Dosage: UNK
  8. ONBREZ [Concomitant]
     Active Substance: INDACATEROL
     Dosage: UNK
  9. EUTIROX [Concomitant]
     Active Substance: LEVOTHYROXINE SODIUM
     Dosage: UNK

REACTIONS (2)
  - Ascites [Fatal]
  - Jaundice [Fatal]

NARRATIVE: CASE EVENT DATE: 20150715
